FAERS Safety Report 9010185 (Version 1)
Quarter: 2013Q1

REPORT INFORMATION
  Report Type: Spontaneous
  Country: US (occurrence: US)
  Receive Date: 20130110
  Receipt Date: 20130110
  Transmission Date: 20140127
  Serious: Yes (Hospitalization)
  Sender: FDA-Public Use
  Company Number: US-BAYER-2013-001510

PATIENT
  Age: 43 Year
  Sex: Female
  Weight: 110.66 kg

DRUGS (21)
  1. YAZ [Suspect]
  2. TRAMADOL [Concomitant]
     Dosage: 50 MG, UNK
     Route: 048
  3. DEXAMETHASONE [Concomitant]
     Indication: HYPERSENSITIVITY
     Dosage: 4 MG, UNK
     Route: 030
     Dates: start: 20080519
  4. ATARAX [Concomitant]
     Indication: HYPERSENSITIVITY
     Dosage: 25 MG, 4 TO 6 HOURS AS NEEDED
     Route: 048
     Dates: start: 20080519
  5. ATARAX [Concomitant]
     Indication: DERMATITIS
  6. LYRICA [Concomitant]
     Dosage: 75 MG, UNK
     Route: 048
  7. HYDROXYZINE [Concomitant]
     Dosage: 25 MG, UNK
     Route: 048
  8. RAMIPRIL [Concomitant]
     Dosage: 5 MG, DAILY
     Route: 048
  9. METHOTREXATE [Concomitant]
     Dosage: WEEKLY FOR 8 WEEKS
  10. ARAVA [Concomitant]
     Dosage: 20 MG, UNK
     Route: 048
  11. HUMIRA [Concomitant]
  12. PREDNISONE [Concomitant]
     Indication: RHEUMATOID ARTHRITIS
     Dosage: 5 MG, DAILY
  13. CELEBREX [Concomitant]
     Dosage: 200 MG, DAILY
  14. ALTACE [Concomitant]
     Indication: HYPERTENSION
     Dosage: 2.5 MG, DAILY
  15. VICODIN [Concomitant]
     Indication: PAIN
     Dosage: 5/500 MG
  16. ZANTAC [Concomitant]
     Dosage: 150 MG, DAILY
  17. FOLIC ACID [Concomitant]
     Dosage: 2 MG, DAILY
  18. LASIX [Concomitant]
     Dosage: 40 MG, DAILY
  19. CALTRATE WITH VITAMIN D [Concomitant]
  20. LOPRESSOR [Concomitant]
  21. MULTIVITAMIN [Concomitant]

REACTIONS (2)
  - Pulmonary embolism [Recovered/Resolved]
  - Deep vein thrombosis [Recovered/Resolved]
